FAERS Safety Report 14239468 (Version 1)
Quarter: 2017Q4

REPORT INFORMATION
  Report Type: Spontaneous
  Country: FR (occurrence: FR)
  Receive Date: 20171130
  Receipt Date: 20171130
  Transmission Date: 20180321
  Serious: Yes (Other)
  Sender: FDA-Public Use
  Company Number: FR-NODEN PHARMA DAC-NOD-2017-000121

PATIENT
  Sex: Male

DRUGS (1)
  1. RASILEZ HCT [Suspect]
     Active Substance: ALISKIREN\HYDROCHLOROTHIAZIDE
     Indication: PRODUCT USED FOR UNKNOWN INDICATION
     Dosage: 1 DF, (300MG ALISKIREN AND 25MG HYDROCHLOROTHIAZIDE)
     Route: 065
     Dates: start: 2007

REACTIONS (1)
  - Open angle glaucoma [Unknown]

NARRATIVE: CASE EVENT DATE: 2015
